FAERS Safety Report 9121795 (Version 1)
Quarter: 2012Q4

REPORT INFORMATION
  Report Type: Spontaneous
  Country: US (occurrence: None)
  Receive Date: 20121026
  Receipt Date: 20121026
  Transmission Date: 20130627
  Serious: No
  Sender: FDA-Public Use
  Company Number: 2012US-004405

PATIENT

DRUGS (1)
  1. OMONTYS (PEGINESATIDE) SOLUTION FOR INJECTION [Suspect]
     Indication: NEPHROGENIC ANAEMIA
     Dosage: UNK,  Intravenous
08/31/2012  to  Ongoing
     Route: 042
     Dates: start: 20120831

REACTIONS (1)
  - Gastrointestinal disorder [None]
